FAERS Safety Report 5496668-1 (Version None)
Quarter: 2007Q4

REPORT INFORMATION
  Report Type: 
  Country: None (occurrence: None)
  Receive Date: 20071025
  Receipt Date: 20070711
  Transmission Date: 20080405
  Serious: No
  Sender: FDA-Public Use
  Company Number: A0661005A

PATIENT
  Age: 85 Year
  Sex: Male

DRUGS (10)
  1. ADVAIR DISKUS 100/50 [Suspect]
     Indication: LUNG DISORDER
     Dosage: 1PUFF TWICE PER DAY
     Route: 055
     Dates: start: 20070606
  2. GLUCOPHAGE [Concomitant]
  3. AMARYL [Concomitant]
  4. IMDUR [Concomitant]
  5. ALTACE [Concomitant]
  6. COREG [Concomitant]
  7. LIPITOR [Concomitant]
  8. ASPIRIN [Concomitant]
  9. NITROSTAT [Concomitant]
  10. JANUVIA [Concomitant]

REACTIONS (1)
  - DRUG INEFFECTIVE [None]
